FAERS Safety Report 20373975 (Version 1)
Quarter: 2022Q1

REPORT INFORMATION
  Report Type: Spontaneous
  Country: US (occurrence: None)
  Receive Date: 20220124
  Receipt Date: 20220124
  Transmission Date: 20220424
  Serious: Yes (Hospitalization)
  Sender: FDA-Public Use
  Company Number: None

PATIENT
  Age: 67 Year
  Sex: Male
  Weight: 142 kg

DRUGS (2)
  1. CASIRIVIMAB [Suspect]
     Active Substance: CASIRIVIMAB
     Indication: COVID-19
     Dosage: OTHER FREQUENCY : ONCE;?
     Route: 040
     Dates: start: 20211227, end: 20211227
  2. IMDEVIMAB [Suspect]
     Active Substance: IMDEVIMAB
     Indication: COVID-19
     Dosage: OTHER FREQUENCY : ONCE;?
     Route: 040
     Dates: start: 20211227, end: 20211227

REACTIONS (2)
  - Hypoxia [None]
  - Sleep apnoea syndrome [None]

NARRATIVE: CASE EVENT DATE: 20211228
